FAERS Safety Report 6440476-1 (Version None)
Quarter: 2009Q4

REPORT INFORMATION
  Report Type: 
  Country: None (occurrence: None)
  Receive Date: 20091113
  Receipt Date: 20091103
  Transmission Date: 20100525
  Serious: Yes (Hospitalization)
  Sender: FDA-Public Use
  Company Number: GR-ABBOTT-09P-066-0601723-00

PATIENT
  Age: 67 Year
  Sex: Female
  Weight: 40 kg

DRUGS (10)
  1. ZEMPLAR [Suspect]
     Indication: HYPERPARATHYROIDISM SECONDARY
     Route: 042
     Dates: start: 20080401, end: 20090601
  2. ANGORON [Concomitant]
     Indication: CORONARY ARTERY DISEASE
     Route: 048
     Dates: start: 20080101
  3. ATACAND [Concomitant]
     Indication: HYPERTENSION
     Route: 048
     Dates: start: 20080101
  4. DIPEN [Concomitant]
     Indication: HYPERTENSION
     Route: 048
     Dates: start: 20080101
  5. FILLICINE [Concomitant]
     Indication: ANAEMIA
     Route: 048
     Dates: start: 20080101
  6. ARANESP [Concomitant]
     Indication: NEPHROGENIC ANAEMIA
     Route: 042
     Dates: start: 20080101
  7. VENOFER [Concomitant]
     Indication: NEPHROGENIC ANAEMIA
     Route: 042
     Dates: start: 20080101
  8. TICLODONE [Concomitant]
     Indication: ANTICOAGULANT THERAPY
     Route: 048
     Dates: start: 20080101
  9. TICLODONE [Concomitant]
     Indication: VASCULAR GRAFT
  10. RENAGEL [Concomitant]
     Indication: HYPERPHOSPHATAEMIA
     Route: 048
     Dates: start: 20080101

REACTIONS (2)
  - ARTERIOVENOUS FISTULA THROMBOSIS [None]
  - SUBCLAVIAN VEIN THROMBOSIS [None]
